FAERS Safety Report 8929307 (Version 1)
Quarter: 2012Q4

REPORT INFORMATION
  Report Type: Spontaneous
  Country: US (occurrence: None)
  Receive Date: 20121126
  Receipt Date: 20121126
  Transmission Date: 20130627
  Serious: No
  Sender: FDA-Public Use
  Company Number: None

PATIENT
  Age: 71 Year
  Sex: Female
  Weight: 60.33 kg

DRUGS (2)
  1. COPAXONE 20 MGM - MFR. TEVA [Suspect]
     Indication: MS
     Dosage: 20 MGM SQ daily
     Route: 058
     Dates: start: 2001, end: 201209
  2. COPAXONE 20 MGM - MFR. TEVA [Suspect]
     Indication: MS

REACTIONS (1)
  - Pruritus [None]
